FAERS Safety Report 5463554-2 (Version None)
Quarter: 2007Q3

REPORT INFORMATION
  Report Type: 
  Country: None (occurrence: None)
  Receive Date: 20070919
  Receipt Date: 20070911
  Transmission Date: 20080115
  Serious: Yes (Other)
  Sender: FDA-Public Use
  Company Number: 163-21880-07060291

PATIENT
  Age: 71 Year
  Sex: Female

DRUGS (2)
  1. REVLIMID [Suspect]
     Indication: MULTIPLE MYELOMA
     Dosage: 15 MG, QD X 21 DAYS, ORAL; 10 MG, 1 IN 1 D, ORAL
     Route: 048
     Dates: start: 20070227, end: 20070301
  2. REVLIMID [Suspect]
     Indication: MULTIPLE MYELOMA
     Dosage: 15 MG, QD X 21 DAYS, ORAL; 10 MG, 1 IN 1 D, ORAL
     Route: 048
     Dates: start: 20070413, end: 20070801

REACTIONS (5)
  - MALIGNANT NEOPLASM PROGRESSION [None]
  - MULTIPLE MYELOMA [None]
  - NEUROPATHY [None]
  - RENAL DISORDER [None]
  - WHITE BLOOD CELL COUNT DECREASED [None]
